FAERS Safety Report 14186223 (Version 1)
Quarter: 2017Q4

REPORT INFORMATION
  Report Type: Spontaneous
  Country: JP (occurrence: JP)
  Receive Date: 20171114
  Receipt Date: 20171114
  Transmission Date: 20180321
  Serious: Yes (Other)
  Sender: FDA-Public Use
  Company Number: JP-009507513-1711JPN004122

PATIENT
  Age: 32 Year
  Sex: Female

DRUGS (1)
  1. TEMOZOLOMIDE. [Suspect]
     Active Substance: TEMOZOLOMIDE
     Indication: GLIOMA
     Dosage: 12 CYCLES, CYCLICAL
     Route: 048

REACTIONS (2)
  - Malignant neoplasm progression [Recovered/Resolved]
  - Drug ineffective [Unknown]
